FAERS Safety Report 12095815 (Version 1)
Quarter: 2016Q1

REPORT INFORMATION
  Report Type: Report from Study
  Country: US (occurrence: US)
  Receive Date: 20160220
  Receipt Date: 20160220
  Transmission Date: 20160526
  Serious: Yes (Hospitalization, Other)
  Sender: FDA-Public Use
  Company Number: US-BRISTOL-MYERS SQUIBB COMPANY-BMS-2016-011081

PATIENT
  Age: 47 Year
  Sex: Male
  Weight: 93.6 kg

DRUGS (2)
  1. IPILIMUMAB [Suspect]
     Active Substance: IPILIMUMAB
     Indication: MALIGNANT MELANOMA
     Dosage: 3 MG/KG, UNK; TOTAL DOSE: 280 MG
     Route: 042
     Dates: start: 20160129
  2. NIVOLUMAB [Suspect]
     Active Substance: NIVOLUMAB
     Indication: MALIGNANT MELANOMA
     Dosage: TOTAL DOSE: 94 MG; 1 MG/KG, UNK
     Route: 042
     Dates: start: 20160129

REACTIONS (4)
  - Oedema peripheral [Unknown]
  - Rash maculo-papular [Unknown]
  - Acute kidney injury [Unknown]
  - Hypoalbuminaemia [Unknown]

NARRATIVE: CASE EVENT DATE: 20160208
